FAERS Safety Report 4456724-3 (Version None)
Quarter: 2004Q3

REPORT INFORMATION
  Report Type: 
  Country: None (occurrence: None)
  Receive Date: 20040921
  Receipt Date: 20040907
  Transmission Date: 20050211
  Serious: Yes (Life-Threatening, Hospitalization)
  Sender: FDA-Public Use
  Company Number: 01P-087-0108648-00

PATIENT
  Age: 40 Year
  Sex: Male

DRUGS (16)
  1. NORVIR [Suspect]
     Indication: HIV INFECTION
     Dosage: SEE IMAGE
     Route: 048
     Dates: start: 19991101, end: 20000306
  2. NORVIR [Suspect]
     Indication: HIV INFECTION
     Dosage: SEE IMAGE
     Route: 048
     Dates: start: 20000405
  3. ZIDOVUDINE [Suspect]
     Indication: HIV INFECTION
     Dosage: 600 MG, 1 IN 1 D, PER ORAL
     Route: 048
     Dates: start: 19991101, end: 20000306
  4. DIDANOSINE [Suspect]
     Indication: HIV INFECTION
     Dosage: 400 MG, 1 IN 1 D, PER ORAL
     Route: 048
     Dates: start: 19991101, end: 20000306
  5. DIDANOSINE [Suspect]
     Indication: HIV INFECTION
     Dosage: 400 MG, 1 IN 1 D, PER ORAL
     Route: 048
     Dates: start: 20000405
  6. LAMIVUDINE [Suspect]
     Indication: HIV INFECTION
     Dosage: 300 MG, 1 IN 1 D, PER ORAL
     Route: 048
     Dates: start: 20000405
  7. ABACAVIR [Suspect]
     Indication: HIV INFECTION
     Dosage: 600 MG, 1 IN 1 D, PER ORAL
     Route: 048
     Dates: start: 20000405
  8. SAQUINAVIR [Suspect]
     Indication: HIV INFECTION
     Dosage: 800 MG, 1 IN1 D, PER ORAL
     Route: 048
     Dates: start: 19991101, end: 19991206
  9. SAQUINAVIR [Suspect]
     Indication: HIV INFECTION
     Dosage: 800 MG, 1 IN1 D, PER ORAL
     Route: 048
     Dates: start: 19991207, end: 20000306
  10. AMPRENAVIR [Suspect]
     Indication: HIV INFECTION
     Dosage: 2.4 GM, 1 IN 1 D, PER ORAL
     Route: 048
     Dates: start: 20000410
  11. EFAVIRENZ [Suspect]
     Indication: HIV INFECTION
     Dosage: 600 MG, 1 IN 1 D, PER ORAL
     Route: 048
     Dates: start: 20000405
  12. GANCICLOVIR [Suspect]
     Indication: CYTOMEGALOVIRUS CHORIORETINITIS
     Dosage: SEE IMAGE
     Route: 042
     Dates: start: 20000207, end: 20000306
  13. GANCICLOVIR [Suspect]
     Indication: CYTOMEGALOVIRUS CHORIORETINITIS
     Dosage: SEE IMAGE
     Route: 042
     Dates: start: 20000307, end: 20000416
  14. GANCICLOVIR [Suspect]
     Indication: CYTOMEGALOVIRUS CHORIORETINITIS
     Dosage: SEE IMAGE
     Route: 042
     Dates: start: 20000417, end: 20000910
  15. BACTRIM [Concomitant]
  16. VITAMIN B COMPLEX CAP [Concomitant]

REACTIONS (9)
  - ARRHYTHMIA [None]
  - CYTOMEGALOVIRUS CHORIORETINITIS [None]
  - DIPLOPIA [None]
  - GAMMA-GLUTAMYLTRANSFERASE INCREASED [None]
  - HYPERLIPIDAEMIA [None]
  - MYCOBACTERIUM AVIUM COMPLEX INFECTION [None]
  - MYOCARDITIS [None]
  - ORAL CANDIDIASIS [None]
  - PYREXIA [None]
